FAERS Safety Report 6242336-8 (Version None)
Quarter: 2009Q2

REPORT INFORMATION
  Report Type: 
  Country: None (occurrence: None)
  Receive Date: 20090624
  Receipt Date: 20090616
  Transmission Date: 20091009
  Serious: Yes (Other)
  Sender: FDA-Public Use
  Company Number: GR-BIOGENIDEC-2009BI014528

PATIENT
  Age: 27 Year
  Sex: Male

DRUGS (2)
  1. TYSABRI [Suspect]
     Indication: MULTIPLE SCLEROSIS
     Route: 042
     Dates: start: 20080301, end: 20080801
  2. PLAVIX [Concomitant]
     Indication: PROPHYLAXIS
     Route: 048

REACTIONS (2)
  - HERPES ZOSTER [None]
  - MENINGITIS ASEPTIC [None]
